FAERS Safety Report 9550120 (Version 1)
Quarter: 2013Q3

REPORT INFORMATION
  Report Type: Report from Study
  Country: AT (occurrence: AT)
  Receive Date: 20130924
  Receipt Date: 20130924
  Transmission Date: 20140515
  Serious: Yes (Other)
  Sender: FDA-Public Use
  Company Number: AT-ROCHE-1278781

PATIENT
  Age: 88 Year
  Sex: 0

DRUGS (1)
  1. VISMODEGIB [Suspect]
     Indication: BASAL CELL CARCINOMA
     Route: 065

REACTIONS (3)
  - Dysgeusia [Unknown]
  - Muscle spasms [Unknown]
  - Neoplasm recurrence [Unknown]
